FAERS Safety Report 4558869-6 (Version None)
Quarter: 2005Q1

REPORT INFORMATION
  Report Type: 
  Country: None (occurrence: None)
  Receive Date: 20050121
  Receipt Date: 20050111
  Transmission Date: 20050727
  Serious: Yes (Hospitalization)
  Sender: FDA-Public Use
  Company Number: US-MERCK-0501USA01820

PATIENT
  Age: 15 Year
  Sex: Male

DRUGS (4)
  1. PRINIVIL [Suspect]
     Route: 048
     Dates: start: 20041201, end: 20041201
  2. GLUCOPHAGE [Suspect]
     Route: 048
     Dates: start: 20041201, end: 20041201
  3. TYLENOL [Suspect]
     Route: 065
     Dates: start: 20041201, end: 20041201
  4. IBUPROFEN [Suspect]
     Route: 065
     Dates: start: 20041201, end: 20041201

REACTIONS (5)
  - HAEMODIALYSIS [None]
  - INTENTIONAL MISUSE [None]
  - LACTIC ACIDOSIS [None]
  - SELF-MEDICATION [None]
  - SUICIDE ATTEMPT [None]
